FAERS Safety Report 7184381-4 (Version None)
Quarter: 2010Q4

REPORT INFORMATION
  Report Type: 
  Country: None (occurrence: None)
  Receive Date: 20101222
  Receipt Date: 20100304
  Transmission Date: 20110411
  Serious: No
  Sender: FDA-Public Use
  Company Number: US-PFIZER INC-2010030745

PATIENT
  Sex: Female

DRUGS (2)
  1. FLUCONAZOLE [Suspect]
     Dosage: 1.25 ML, 1X/DAY
     Dates: start: 20100219
  2. FLUCONAZOLE [Suspect]
     Dosage: 0.75 ML, 1X/DAY
     Dates: start: 20100220, end: 20100201

REACTIONS (1)
  - EXPIRED DRUG ADMINISTERED [None]
